FAERS Safety Report 5952616-9 (Version None)
Quarter: 2008Q4

REPORT INFORMATION
  Report Type: 
  Country: None (occurrence: None)
  Receive Date: 20081031
  Receipt Date: 20071018
  Transmission Date: 20090506
  Serious: Yes (Other)
  Sender: FDA-Public Use
  Company Number: US-WYE-H00769207

PATIENT
  Age: 75 Year
  Sex: Female
  Weight: 44.49 kg

DRUGS (6)
  1. PREMARIN [Suspect]
     Indication: OESTROGEN THERAPY
     Dosage: 0.625 MG 1X PER 1 DAY, VAGINAL
     Route: 067
     Dates: start: 20070801
  2. TIMOLOL MALEATE [Concomitant]
  3. OMACOR (OMEGA-3 POLYUNSATURATED FATTY ACIDS) [Concomitant]
  4. ALTACE [Concomitant]
  5. VITAMIN D [Concomitant]
  6. FOSAMAX [Concomitant]

REACTIONS (2)
  - DIPLOPIA [None]
  - VISION BLURRED [None]
